FAERS Safety Report 18708600 (Version 1)
Quarter: 2021Q1

REPORT INFORMATION
  Report Type: Spontaneous
  Country: FR (occurrence: FR)
  Receive Date: 20210106
  Receipt Date: 20210106
  Transmission Date: 20210419
  Serious: Yes (Hospitalization)
  Sender: FDA-Public Use
  Company Number: FR-TEVA-2020-FR-1865476

PATIENT
  Age: 90 Year
  Sex: Female
  Weight: 70 kg

DRUGS (7)
  1. VASTAREL [Concomitant]
     Active Substance: TRIMETAZIDINE DIHYDROCHLORIDE
  2. FUROSEMIDE. [Concomitant]
     Active Substance: FUROSEMIDE
  3. ALLOPURINOL. [Suspect]
     Active Substance: ALLOPURINOL
     Indication: GOUT
     Dosage: 1 DF
     Route: 048
     Dates: start: 20200710, end: 20200715
  4. ATACAND [Concomitant]
     Active Substance: CANDESARTAN CILEXETIL
  5. ARANESP [Concomitant]
     Active Substance: DARBEPOETIN ALFA
  6. BISOCE [Concomitant]
     Active Substance: BISOPROLOL
  7. LASILIX [Concomitant]
     Active Substance: FUROSEMIDE

REACTIONS (3)
  - Face oedema [Recovered/Resolved]
  - Oedema peripheral [Recovered/Resolved]
  - Rash pruritic [Recovered/Resolved]

NARRATIVE: CASE EVENT DATE: 20190715
